FAERS Safety Report 5694052-9 (Version None)
Quarter: 2008Q2

REPORT INFORMATION
  Report Type: 
  Country: None (occurrence: None)
  Receive Date: 20080403
  Receipt Date: 20080327
  Transmission Date: 20081010
  Serious: Yes (Life-Threatening, Hospitalization, Other)
  Sender: FDA-Public Use
  Company Number: GB-MERCK-0803GBR00097

PATIENT
  Age: 65 Year
  Sex: Male

DRUGS (8)
  1. CANCIDAS [Suspect]
     Indication: OSTEOMYELITIS
     Route: 042
     Dates: start: 20080222, end: 20080304
  2. AMLODIPINE BESYLATE [Concomitant]
     Indication: HYPERTENSION
     Route: 048
     Dates: start: 20080303
  3. CANDESARTAN [Concomitant]
     Route: 048
  4. CYCLIZINE [Concomitant]
     Indication: NAUSEA
     Route: 048
     Dates: start: 20080219, end: 20080302
  5. GLICLAZIDE [Concomitant]
     Indication: DIABETES MELLITUS
     Route: 048
  6. LISINOPRIL [Concomitant]
     Route: 048
  7. METFORMIN [Concomitant]
     Indication: DIABETES MELLITUS
     Route: 048
  8. PREDNISOLONE [Concomitant]
     Indication: RHEUMATOID ARTHRITIS
     Route: 048

REACTIONS (6)
  - CONFUSIONAL STATE [None]
  - DELIRIUM [None]
  - HYPERTENSION [None]
  - HYPOTENSION [None]
  - LETHARGY [None]
  - NAUSEA [None]
